FAERS Safety Report 5799732-2 (Version None)
Quarter: 2008Q3

REPORT INFORMATION
  Report Type: 
  Country: None (occurrence: None)
  Receive Date: 20080703
  Receipt Date: 20080618
  Transmission Date: 20090109
  Serious: Yes (Death, Other)
  Sender: FDA-Public Use
  Company Number: DE-BAYER-200821079GPV

PATIENT
  Age: 39 Year
  Weight: 84 kg

DRUGS (10)
  1. FLUDARABINE PHOSPHATE [Suspect]
     Indication: BONE MARROW CONDITIONING REGIMEN
     Dosage: TOTAL DAILY DOSE: 120 MG/M2
     Route: 042
  2. ANTI-THYMOCYTE GLOBULIN NOS [Suspect]
     Indication: BONE MARROW CONDITIONING REGIMEN
  3. ACYCLOVIR SODIUM [Concomitant]
     Indication: ANTIVIRAL PROPHYLAXIS
  4. ITRACONAZOLE [Concomitant]
     Indication: ANTIFUNGAL PROPHYLAXIS
  5. VORICONAZOLE [Concomitant]
     Indication: ANTIFUNGAL PROPHYLAXIS
  6. CO-TRIMOXAZOLE [Concomitant]
     Indication: ANTIBIOTIC PROPHYLAXIS
  7. METRONIDAZOLE HCL [Concomitant]
     Indication: DRUG USE FOR UNKNOWN INDICATION
  8. IMMUNE GLOBULIN INTRAVENOUS (HUMAN) [Concomitant]
     Indication: DRUG USE FOR UNKNOWN INDICATION
     Route: 042
  9. NEUPOGEN [Concomitant]
     Indication: WHITE BLOOD CELL COUNT DECREASED
  10. RIBAVIRIN [Concomitant]
     Indication: ANTIVIRAL PROPHYLAXIS

REACTIONS (3)
  - MUCOSAL INFLAMMATION [None]
  - ORGANISING PNEUMONIA [None]
  - TRANSPLANT FAILURE [None]
